FAERS Safety Report 4675139-6 (Version None)
Quarter: 2005Q2

REPORT INFORMATION
  Report Type: 
  Country: None (occurrence: None)
  Receive Date: 20050525
  Receipt Date: 20050518
  Transmission Date: 20051028
  Serious: Yes (Hospitalization, Other)
  Sender: FDA-Public Use
  Company Number: GBWYE676718MAY05

PATIENT
  Age: 52 Year
  Sex: Male

DRUGS (4)
  1. ACETAMINOPHEN [Suspect]
  2. ADVIL [Suspect]
  3. ALCOHOL (ETHANOL, , 0) [Suspect]
     Dosage: TOO MUCH TO DRINK ORAL
     Route: 048
  4. PREDNISOLONE [Suspect]

REACTIONS (4)
  - ALCOHOL USE [None]
  - INTENTIONAL MISUSE [None]
  - MULTIPLE DRUG OVERDOSE [None]
  - SUICIDE ATTEMPT [None]
